FAERS Safety Report 15350048 (Version 1)
Quarter: 2018Q3

REPORT INFORMATION
  Report Type: Report from Study
  Country: None (occurrence: AT)
  Receive Date: 20180904
  Receipt Date: 20180904
  Transmission Date: 20181010
  Serious: Yes (Death)
  Sender: FDA-Public Use
  Company Number: AT-ABBVIE-18S-009-2473501-00

PATIENT
  Age: 76 Year
  Sex: Male

DRUGS (1)
  1. DUODOPA [Suspect]
     Active Substance: CARBIDOPA\LEVODOPA
     Indication: PARKINSON^S DISEASE
     Dosage: 24H THERAPY:  MD: 7ML, CR DAYTIME: 5.4ML/H ,CR NOCTURAL: 3ML/H ,ED: 3.3ML
     Route: 050
     Dates: start: 20150210

REACTIONS (1)
  - Death [Fatal]

NARRATIVE: CASE EVENT DATE: 20180829
